FAERS Safety Report 9308163 (Version 2)
Quarter: 2013Q3

REPORT INFORMATION
  Report Type: Spontaneous
  Country: US (occurrence: US)
  Receive Date: 20130524
  Receipt Date: 20130704
  Transmission Date: 20140515
  Serious: Yes (Other)
  Sender: FDA-Public Use
  Company Number: US-PFIZER INC-2013159626

PATIENT
  Age: 66 Year
  Sex: Female
  Weight: 62.13 kg

DRUGS (4)
  1. LYRICA [Suspect]
     Indication: FIBROMYALGIA
     Dosage: 75 MG, 2X/DAY
     Dates: start: 201304, end: 201304
  2. LYRICA [Suspect]
     Indication: CARPAL TUNNEL SYNDROME
     Dosage: 50 MG, 2X/DAY
     Dates: start: 201304, end: 201304
  3. LYRICA [Suspect]
     Dosage: 50 MG, 1X/DAY
     Dates: start: 201304
  4. IPRATROPIUM BROMIDE [Suspect]
     Indication: DYSPNOEA
     Dosage: UNK, EVERY 4-6 HOURS

REACTIONS (12)
  - Intentional drug misuse [Unknown]
  - Off label use [Unknown]
  - Pharyngeal oedema [Unknown]
  - Throat tightness [Unknown]
  - Wheezing [Unknown]
  - Bone swelling [Unknown]
  - Myalgia [Unknown]
  - Muscular weakness [Unknown]
  - Feeling abnormal [Unknown]
  - Disturbance in attention [Unknown]
  - Weight decreased [Unknown]
  - Pain in extremity [Unknown]
